FAERS Safety Report 24899147 (Version 1)
Quarter: 2025Q1

REPORT INFORMATION
  Report Type: Spontaneous
  Country: US (occurrence: None)
  Receive Date: 20250129
  Receipt Date: 20250129
  Transmission Date: 20250409
  Serious: Yes (Hospitalization)
  Sender: FDA-CTU
  Company Number: None

PATIENT
  Age: 6 Year
  Sex: Female
  Weight: 22.6 kg

DRUGS (3)
  1. CARBOPLATIN [Suspect]
     Active Substance: CARBOPLATIN
     Dates: end: 20250101
  2. CYCLOPHOSPHAMIDE [Suspect]
     Active Substance: CYCLOPHOSPHAMIDE
     Dates: end: 20250104
  3. ETOPOSIDE [Suspect]
     Active Substance: ETOPOSIDE
     Dates: end: 20250104

REACTIONS (7)
  - Septic shock [None]
  - Respiratory failure [None]
  - Multiple organ dysfunction syndrome [None]
  - Febrile neutropenia [None]
  - Cardiac arrest [None]
  - Clostridial sepsis [None]
  - Vomiting [None]

NARRATIVE: CASE EVENT DATE: 20250115
